FAERS Safety Report 9831418 (Version 1)
Quarter: 2014Q1

REPORT INFORMATION
  Report Type: Spontaneous
  Country: US (occurrence: US)
  Receive Date: 20140121
  Receipt Date: 20140121
  Transmission Date: 20141002
  Serious: Yes (Other)
  Sender: FDA-Public Use
  Company Number: US-BRISTOL-MYERS SQUIBB COMPANY-20015426

PATIENT
  Age: 81 Year
  Sex: Female

DRUGS (2)
  1. COUMADIN [Suspect]
     Indication: CEREBROVASCULAR ACCIDENT PROPHYLAXIS
  2. GLYBURIDE [Concomitant]
     Indication: DIABETES MELLITUS

REACTIONS (6)
  - Haemorrhage [Unknown]
  - Haematemesis [Unknown]
  - Pneumonia [Unknown]
  - Thrombosis [Unknown]
  - Haemoglobin decreased [Unknown]
  - Dyspnoea [Unknown]
